FAERS Safety Report 5073408-1 (Version None)
Quarter: 2006Q3

REPORT INFORMATION
  Report Type: 
  Country: None (occurrence: None)
  Receive Date: 20060717
  Receipt Date: 20060320
  Transmission Date: 20061208
  Serious: No
  Sender: FDA-Public Use
  Company Number: 2006000684

PATIENT
  Sex: Male

DRUGS (7)
  1. TARCEVA [Suspect]
     Indication: PANCREATIC CARCINOMA
     Dosage: SEE IMAGE
     Route: 048
  2. GEMZAR [Concomitant]
  3. COREG [Concomitant]
  4. INSULIN [Concomitant]
  5. AMBIEN [Concomitant]
  6. HYDROCODONE(HYDROCODONE) [Concomitant]
  7. PANCREAS [Concomitant]

REACTIONS (1)
  - PLATELET COUNT DECREASED [None]
